FAERS Safety Report 6403421-0 (Version None)
Quarter: 2009Q4

REPORT INFORMATION
  Report Type: 
  Country: None (occurrence: None)
  Receive Date: 20091016
  Receipt Date: 20091013
  Transmission Date: 20100525
  Serious: Yes (Hospitalization)
  Sender: FDA-Public Use
  Company Number: FR-BRISTOL-MYERS SQUIBB COMPANY-14816763

PATIENT
  Age: 33 Year
  Sex: Male

DRUGS (8)
  1. PERFALGAN [Suspect]
     Dates: start: 20090806, end: 20090909
  2. FUNGIZONE [Suspect]
     Dates: start: 20090818, end: 20090910
  3. ARIXTRA [Suspect]
     Route: 058
     Dates: start: 20090818, end: 20090911
  4. PIPERACILLIN [Suspect]
     Route: 042
     Dates: start: 20090824, end: 20090908
  5. TAVANIC [Suspect]
     Dosage: INTERRUPTED ON 8SEP2009 AND RESTARTED ON 10SEP2009
     Dates: start: 20090828, end: 20090918
  6. RIFADIN [Suspect]
     Dates: start: 20090828, end: 20090910
  7. TAZOCILLINE [Concomitant]
     Route: 042
     Dates: start: 20090818, end: 20090825
  8. VANCOMYCIN [Concomitant]
     Route: 042
     Dates: start: 20090818, end: 20090825

REACTIONS (1)
  - DRUG RASH WITH EOSINOPHILIA AND SYSTEMIC SYMPTOMS [None]
